FAERS Safety Report 14624691 (Version 3)
Quarter: 2018Q1

REPORT INFORMATION
  Report Type: Spontaneous
  Country: US (occurrence: US)
  Receive Date: 20180312
  Receipt Date: 20180319
  Transmission Date: 20180509
  Serious: No
  Sender: FDA-Public Use
  Company Number: US-PFIZER INC-2018097978

PATIENT
  Age: 5 Month
  Sex: Female

DRUGS (2)
  1. GENOTROPIN MQ [Suspect]
     Active Substance: SOMATROPIN
     Dosage: 0.15 MG, DAILY
  2. GENOTROPIN MQ [Suspect]
     Active Substance: SOMATROPIN
     Dosage: 0.2 MG, UNK
     Dates: start: 20171005

REACTIONS (5)
  - Injection site pain [Unknown]
  - Drug prescribing error [Unknown]
  - Wrong technique in product usage process [Not Recovered/Not Resolved]
  - Intentional dose omission [Unknown]
  - Device issue [Unknown]
